FAERS Safety Report 9873268 (Version 1)
Quarter: 2014Q1

REPORT INFORMATION
  Report Type: Other
  Country: US (occurrence: US)
  Receive Date: 20140206
  Receipt Date: 20140206
  Transmission Date: 20141002
  Serious: Yes (Hospitalization)
  Sender: FDA-Public Use
  Company Number: US-ACORDA-ACO_101283_2014

PATIENT
  Age: 74 Year
  Sex: Female

DRUGS (1)
  1. AMPYRA [Suspect]
     Indication: PRODUCT USED FOR UNKNOWN INDICATION
     Dosage: 10MG, BID
     Route: 065

REACTIONS (3)
  - Lower limb fracture [Unknown]
  - Fall [Recovered/Resolved]
  - Restless legs syndrome [Unknown]
